FAERS Safety Report 9686330 (Version 2)
Quarter: 2013Q4

REPORT INFORMATION
  Report Type: Report from Study
  Country: BR (occurrence: BR)
  Receive Date: 20131113
  Receipt Date: 20131113
  Transmission Date: 20140711
  Serious: Yes (Hospitalization, Other)
  Sender: FDA-Public Use
  Company Number: BR-ABBVIE-12P-020-1007203-00

PATIENT
  Age: 68 Year
  Sex: Female
  Weight: 65 kg

DRUGS (5)
  1. HUMIRA [Suspect]
     Indication: CROHN^S DISEASE
     Route: 058
     Dates: start: 201210
  2. AMIODARONE [Suspect]
     Indication: CARDIAC DISORDER
     Dosage: HALF TABLET PER DAY
     Route: 048
     Dates: start: 20131024
  3. DIAZEPAM [Concomitant]
     Indication: ANXIETY
     Route: 050
     Dates: start: 1975
  4. FUROSEMIDE [Concomitant]
     Indication: MYOCARDIAL OEDEMA
     Route: 050
     Dates: start: 20131024
  5. CARVEDILOL [Concomitant]
     Indication: CARDIAC DISORDER
     Route: 048
     Dates: start: 20121024

REACTIONS (14)
  - Cardiac disorder [Unknown]
  - Arrhythmia [Recovering/Resolving]
  - Arrhythmia [Recovering/Resolving]
  - Blood pressure decreased [Recovered/Resolved]
  - Heart rate decreased [Recovered/Resolved]
  - Cardiac murmur [Unknown]
  - Cardiovascular disorder [Unknown]
  - Stress [Unknown]
  - Depression [Recovered/Resolved]
  - Palpitations [Unknown]
  - Headache [Unknown]
  - Dizziness [Unknown]
  - Influenza [Unknown]
  - Influenza [Unknown]
